FAERS Safety Report 19792574 (Version 1)
Quarter: 2021Q3

REPORT INFORMATION
  Report Type: Spontaneous
  Country: US (occurrence: US)
  Receive Date: 20210906
  Receipt Date: 20210906
  Transmission Date: 20211014
  Serious: No
  Sender: FDA-Public Use
  Company Number: US-ASTRAZENECA-2021A700725

PATIENT
  Age: 754 Month
  Sex: Male
  Weight: 79.4 kg

DRUGS (3)
  1. BRILINTA [Suspect]
     Active Substance: TICAGRELOR
     Indication: POST CARDIAC ARREST SYNDROME
     Route: 048
     Dates: start: 201604
  2. BRILINTA [Suspect]
     Active Substance: TICAGRELOR
     Indication: STENT PLACEMENT
     Route: 048
     Dates: start: 201604
  3. BABY ASPIRIN [Concomitant]
     Active Substance: ASPIRIN
     Dosage: UNKNOWN DOSE AND FREQUENCY
     Route: 065

REACTIONS (4)
  - Contusion [Unknown]
  - Haemorrhage [Recovered/Resolved]
  - Product use issue [Unknown]
  - Wound [Recovered/Resolved]

NARRATIVE: CASE EVENT DATE: 201604
